FAERS Safety Report 20885876 (Version 3)
Quarter: 2022Q2

REPORT INFORMATION
  Report Type: Report from Study
  Country: US (occurrence: US)
  Receive Date: 20220527
  Receipt Date: 20220607
  Transmission Date: 20220721
  Serious: No
  Sender: FDA-Public Use
  Company Number: US-NOVARTISTESTPH-NVSC2022US121868

PATIENT
  Age: 90 Year
  Sex: Male

DRUGS (1)
  1. COSENTYX [Suspect]
     Active Substance: SECUKINUMAB
     Indication: Product used for unknown indication
     Dosage: 150 MG, QMO
     Route: 065
     Dates: start: 20181116, end: 20220603

REACTIONS (4)
  - Product leakage [Unknown]
  - Device defective [Unknown]
  - Incorrect dose administered [Unknown]
  - Needle issue [Recovered/Resolved]

NARRATIVE: CASE EVENT DATE: 20220527
